FAERS Safety Report 19808885 (Version 1)
Quarter: 2021Q3

REPORT INFORMATION
  Report Type: Spontaneous
  Country: US (occurrence: US)
  Receive Date: 20210908
  Receipt Date: 20210908
  Transmission Date: 20211014
  Serious: Yes (Other)
  Sender: FDA-Public Use
  Company Number: US-FRESENIUS KABI-FK202109450

PATIENT
  Sex: Female

DRUGS (1)
  1. OXYTOCIN INJECTION, USP [Suspect]
     Active Substance: OXYTOCIN
     Indication: PRODUCT USED FOR UNKNOWN INDICATION
     Dosage: UNKNOWN
     Route: 065

REACTIONS (3)
  - Accidental overdose [Recovered/Resolved]
  - Exposure during pregnancy [Unknown]
  - Product administration error [Unknown]
